FAERS Safety Report 5390744-X (Version None)
Quarter: 2007Q3

REPORT INFORMATION
  Report Type: 
  Country: None (occurrence: None)
  Receive Date: 20070718
  Receipt Date: 20070709
  Transmission Date: 20080115
  Serious: Yes (Hospitalization)
  Sender: FDA-Public Use
  Company Number: CA-ELI_LILLY_AND_COMPANY-CA200707003060

PATIENT
  Age: 76 Year
  Sex: Female

DRUGS (7)
  1. FORTEO [Suspect]
     Indication: OSTEOPOROSIS
     Dosage: 20 UG, DAILY (1/D)
     Route: 058
     Dates: start: 20070628
  2. LIPITOR [Concomitant]
  3. ALTACE [Concomitant]
  4. EVISTA [Suspect]
  5. COUMADIN [Concomitant]
  6. FUROSEMIDE [Concomitant]
  7. SOTALOL HYDROCHLORIDE [Concomitant]

REACTIONS (1)
  - COMPRESSION FRACTURE [None]
